FAERS Safety Report 23278920 (Version 1)
Quarter: 2023Q4

REPORT INFORMATION
  Report Type: Spontaneous
  Country: GB (occurrence: GB)
  Receive Date: 20231208
  Receipt Date: 20231208
  Transmission Date: 20240110
  Serious: Yes (Other)
  Sender: FDA-Public Use
  Company Number: None

PATIENT
  Age: 51 Year
  Sex: Male
  Weight: 79 kg

DRUGS (3)
  1. BEMPEDOIC ACID\EZETIMIBE [Suspect]
     Active Substance: BEMPEDOIC ACID\EZETIMIBE
     Indication: Product used for unknown indication
     Dosage: 1 DF, QD,(180MG/10MG TO BOOK IN FOR BLOODS FOR LIPIDS (FASTING)/URIC ACID.
     Route: 065
     Dates: start: 20231024, end: 20231128
  2. BEZAFIBRATE [Concomitant]
     Active Substance: BEZAFIBRATE
     Indication: Cerebrovascular disorder
     Dosage: 1 DF, QD,(AFTER FOOD)
     Route: 065
     Dates: start: 20231128
  3. FOLIC ACID [Concomitant]
     Active Substance: FOLIC ACID
     Indication: Product used for unknown indication
     Dosage: 1 DF, QD
     Route: 065
     Dates: start: 20231020

REACTIONS (3)
  - Burning sensation [Unknown]
  - Swelling of eyelid [Unknown]
  - Rash pruritic [Unknown]
